FAERS Safety Report 18720998 (Version 1)
Quarter: 2021Q1

REPORT INFORMATION
  Report Type: Spontaneous
  Country: PT (occurrence: PT)
  Receive Date: 20210108
  Receipt Date: 20210108
  Transmission Date: 20210419
  Serious: Yes (Other)
  Sender: FDA-Public Use
  Company Number: PT-AMGEN-PRTSP2020211447

PATIENT
  Age: 58 Year
  Sex: Female

DRUGS (4)
  1. FOLIC ACID. [Concomitant]
     Active Substance: FOLIC ACID
     Dosage: 10 MILLIGRAM, QWK
     Route: 048
  2. METEX [METHOTREXATE SODIUM] [Concomitant]
     Active Substance: METHOTREXATE SODIUM
     Dosage: 17.5 MILLIGRAM QWK
     Route: 058
  3. ZILPEN [PARACETAMOL;TRAMADOL HYDROCHLORIDE] [Concomitant]
     Dosage: 1 DOSAGE FORM, AS NECESSARY
     Route: 048
  4. ADALIMUMAB [Suspect]
     Active Substance: ADALIMUMAB
     Indication: PSORIATIC ARTHROPATHY
     Dosage: 80MG AT WEEK 0 AND AFTER 40MG EVERY2WEEKS,STARTING ON WEEK 2
     Route: 058
     Dates: start: 20201119, end: 20201119

REACTIONS (1)
  - Toxic skin eruption [Recovering/Resolving]

NARRATIVE: CASE EVENT DATE: 20201201
